FAERS Safety Report 8963343 (Version 2)
Quarter: 2013Q1

REPORT INFORMATION
  Report Type: Spontaneous
  Country: FR (occurrence: FR)
  Receive Date: 20121214
  Receipt Date: 20130131
  Transmission Date: 20140127
  Serious: Yes (Other)
  Sender: FDA-Public Use
  Company Number: FR-JNJFOC-20121205627

PATIENT
  Sex: Female

DRUGS (2)
  1. XARELTO [Suspect]
     Indication: EMBOLISM VENOUS
     Route: 048
     Dates: start: 20121019, end: 20121114
  2. XARELTO [Suspect]
     Indication: PULMONARY EMBOLISM
     Route: 048
     Dates: start: 20121019, end: 20121114

REACTIONS (4)
  - Dermatitis allergic [Recovering/Resolving]
  - Insomnia [Recovered/Resolved]
  - Pruritus [Not Recovered/Not Resolved]
  - Visual impairment [Recovering/Resolving]
